FAERS Safety Report 12743459 (Version 1)
Quarter: 2016Q3

REPORT INFORMATION
  Report Type: Spontaneous
  Country: US (occurrence: US)
  Receive Date: 20160914
  Receipt Date: 20160914
  Transmission Date: 20161109
  Serious: No
  Sender: FDA-Public Use
  Company Number: US-BAYER-2016-178052

PATIENT
  Age: 53 Year
  Sex: Female
  Weight: 73.92 kg

DRUGS (2)
  1. GIANVI [Suspect]
     Active Substance: DROSPIRENONE\ETHINYL ESTRADIOL
     Indication: DYSMENORRHOEA
     Dosage: UNK
     Route: 048
  2. GIANVI [Suspect]
     Active Substance: DROSPIRENONE\ETHINYL ESTRADIOL
     Indication: CONTRACEPTION

REACTIONS (6)
  - Abdominal pain upper [Recovered/Resolved]
  - Diarrhoea [None]
  - Extra dose administered [None]
  - Diarrhoea [Recovered/Resolved]
  - Drug dose omission [None]
  - Abdominal pain upper [None]

NARRATIVE: CASE EVENT DATE: 201608
